FAERS Safety Report 14589879 (Version 2)
Quarter: 2018Q1

REPORT INFORMATION
  Report Type: Spontaneous
  Country: GB (occurrence: GB)
  Receive Date: 20180302
  Receipt Date: 20180308
  Transmission Date: 20180509
  Serious: Yes (Life-Threatening, Other)
  Sender: FDA-Public Use
  Company Number: GB-STRIDES ARCOLAB LIMITED-2018SP001353

PATIENT

DRUGS (4)
  1. AZATHIOPRINE. [Suspect]
     Active Substance: AZATHIOPRINE
     Indication: LIVER TRANSPLANT
     Dosage: UNKNOWN
     Route: 065
  2. TACROLIMUS. [Suspect]
     Active Substance: TACROLIMUS
     Indication: LIVER TRANSPLANT
     Dosage: UNKNOWN
     Route: 065
  3. PREDNISOLONE. [Suspect]
     Active Substance: PREDNISOLONE
     Indication: LIVER TRANSPLANT
     Dosage: UNKNOWN
     Route: 065
  4. MYCOPHENOLATE MOFETIL. [Suspect]
     Active Substance: MYCOPHENOLATE MOFETIL
     Indication: LIVER TRANSPLANT
     Dosage: UNKNOWN
     Route: 065

REACTIONS (12)
  - Anal ulcer [Recovered/Resolved]
  - Escherichia sepsis [Recovered/Resolved]
  - Respiratory failure [Recovered/Resolved]
  - Diarrhoea [Recovered/Resolved]
  - Neutropenic sepsis [Recovered/Resolved]
  - Peritonitis [Recovered/Resolved]
  - Influenza [Recovered/Resolved]
  - Cytomegalovirus viraemia [Recovered/Resolved]
  - Bacteraemia [Recovered/Resolved]
  - Multiple organ dysfunction syndrome [Recovered/Resolved]
  - Acute kidney injury [Recovered/Resolved]
  - Proctitis [Recovered/Resolved]
